FAERS Safety Report 7038947-2 (Version None)
Quarter: 2010Q4

REPORT INFORMATION
  Report Type: 
  Country: None (occurrence: None)
  Receive Date: 20101012
  Receipt Date: 20101001
  Transmission Date: 20110411
  Serious: Yes (Other)
  Sender: FDA-Public Use
  Company Number: CO-WYE-H17954710

PATIENT
  Sex: Female

DRUGS (11)
  1. RAPAMUNE [Suspect]
     Indication: PROPHYLAXIS AGAINST TRANSPLANT REJECTION
     Route: 048
     Dates: start: 20050101, end: 20100701
  2. RAPAMUNE [Suspect]
     Route: 048
     Dates: start: 20100701
  3. SPIRONOLACTONE [Concomitant]
  4. ACETYLSALICYLIC ACID SRT [Concomitant]
  5. CALCIUM CARBONATE [Concomitant]
  6. LOVASTATIN [Concomitant]
  7. GLIBENCLAMIDE [Concomitant]
     Dosage: DOSE NOT PROVIDED
  8. GLIBENCLAMIDE [Concomitant]
     Dosage: DOSE NOT PROVIDED
  9. CALCITRIOL [Concomitant]
     Dosage: 25 MG
  10. PREDNISOLONE [Concomitant]
     Indication: PROPHYLAXIS AGAINST TRANSPLANT REJECTION
     Dates: start: 20050101
  11. METFORAL [Concomitant]
     Dosage: DOSE NOT PROVIDED/DAILY

REACTIONS (8)
  - ACNE [None]
  - BACK PAIN [None]
  - BONE PAIN [None]
  - CONDITION AGGRAVATED [None]
  - CYSTITIS [None]
  - HYPOTENSION [None]
  - PRURITUS [None]
  - SKIN CANCER [None]
